FAERS Safety Report 7824537-8 (Version None)
Quarter: 2011Q4

REPORT INFORMATION
  Report Type: 
  Country: None (occurrence: None)
  Receive Date: 20111019
  Receipt Date: 20111005
  Transmission Date: 20120403
  Serious: Yes (Hospitalization)
  Sender: FDA-Public Use
  Company Number: US-BAYER-201042010NA

PATIENT
  Age: 38 Year
  Sex: Female
  Weight: 126.98 kg

DRUGS (8)
  1. FLUOXETINE [Concomitant]
     Indication: ANXIETY
     Dosage: 20 MG, UNK
     Route: 048
     Dates: start: 20061101, end: 20070901
  2. METFORMIN HCL [Concomitant]
     Indication: WEIGHT CONTROL
     Dosage: 1000 MG, UNK
     Route: 048
     Dates: start: 20061101
  3. YASMIN [Suspect]
     Indication: POLYCYSTIC OVARIES
  4. YAZ [Suspect]
     Indication: POLYCYSTIC OVARIES
  5. YASMIN [Suspect]
     Indication: CONTRACEPTION
     Route: 048
     Dates: start: 20060201, end: 20070101
  6. FLUOXETINE [Concomitant]
     Indication: DEPRESSION
  7. PROZAC [Concomitant]
  8. ALPRAZOLAM [Concomitant]
     Indication: ANXIETY
     Dosage: UNK
     Dates: start: 20070301, end: 20070901

REACTIONS (2)
  - DEEP VEIN THROMBOSIS [None]
  - PULMONARY EMBOLISM [None]
